FAERS Safety Report 19839888 (Version 2)
Quarter: 2022Q4

REPORT INFORMATION
  Report Type: Spontaneous
  Country: DE (occurrence: DE)
  Receive Date: 20210915
  Receipt Date: 20221101
  Transmission Date: 20230112
  Serious: Yes (Hospitalization)
  Sender: FDA-Public Use
  Company Number: DE-ADRED-07064-01

PATIENT
  Age: 82 Year
  Sex: Female

DRUGS (17)
  1. MIRTAZAPINE [Suspect]
     Active Substance: MIRTAZAPINE
     Dosage: 15 MG, 0-0-1-0, TABLETS
     Route: 048
  2. LETROZOLE [Suspect]
     Active Substance: LETROZOLE
     Dosage: 2.5 MG, 1-0-0-0, TABLETS
     Route: 048
  3. XARELTO [Suspect]
     Active Substance: RIVAROXABAN
     Dosage: 15 MG, 1-0-0-0, TABLETS
     Route: 048
  4. METOPROLOL [Suspect]
     Active Substance: METOPROLOL
     Dosage: 23.7 MG, 1-0-1-0, SUSTAINED-RELEASE TABLET
     Route: 048
  5. ESCITALOPRAM [Suspect]
     Active Substance: ESCITALOPRAM OXALATE
     Dosage: 10 MG, 2-0-1-0, TABLETS
     Route: 048
  6. TOCILIZUMAB [Suspect]
     Active Substance: TOCILIZUMAB
     Dosage: 162 MG, THURSDAYS, INJECTIONS-/SOLUTION FOR INFUSION
     Route: 058
  7. LEVETIRACETAM [Concomitant]
     Active Substance: LEVETIRACETAM
     Dosage: 1000 MG, 1-0-1-0, TABLETS
     Route: 048
  8. ATORVASTATIN [Concomitant]
     Active Substance: ATORVASTATIN
     Dosage: 20 MG, 0-0-2-0, TABLETS
     Route: 048
  9. DIGITOXIN [Concomitant]
     Active Substance: DIGITOXIN
     Dosage: 0.05 MG, MONDAY WEDNESDAY FRIDAY MORNING ONE TABLET, TABLETS
     Route: 048
  10. VITAMIN B12 [Concomitant]
     Active Substance: CYANOCOBALAMIN
     Dosage: 1000 MICROGRAM (MCG),WEEKLY, INJECTIONS-/SOLUTION FOR INFUSION
     Route: 058
  11. DULCOLAX (BISACODYL) [Concomitant]
     Active Substance: BISACODYL
     Dosage: 10 MG, AS NEEDED, DRAGEES
     Route: 048
  12. PERENTEROL [Concomitant]
     Active Substance: SACCHAROMYCES CEREVISIAE
     Dosage: 250 MG, AS NEEDED, CAPSULE
     Route: 048
  13. PANTOPRAZOLE [Concomitant]
     Active Substance: PANTOPRAZOLE
     Dosage: 40 MG, 1-0-0-0, TABLETS
     Route: 048
  14. TORSEMIDE [Concomitant]
     Active Substance: TORSEMIDE
     Dosage: 10 MG, 1-0-0-0, TABLETS
     Route: 048
  15. METAMIZOLE [Concomitant]
     Active Substance: METAMIZOLE
     Dosage: AS NEEDED, DROPS
     Route: 048
  16. NITRENDIPINE [Concomitant]
     Active Substance: NITRENDIPINE
     Dosage: AS NEEDED, VIAL
     Route: 060
  17. CALCIUM VITAMIN D3 ACIS [Concomitant]
     Dosage: 400 IE, 1-1-0-0, EFFERVESCENT TABLETS, (STRENGTH : 500MG/400I.E.)
     Route: 048

REACTIONS (3)
  - Humerus fracture [Unknown]
  - Dizziness [Unknown]
  - Fall [Unknown]
